FAERS Safety Report 10281354 (Version 1)
Quarter: 2014Q3

REPORT INFORMATION
  Report Type: Spontaneous
  Country: US (occurrence: None)
  Receive Date: 20140702
  Receipt Date: 20140702
  Transmission Date: 20150326
  Serious: Yes (Hospitalization, Other)
  Sender: FDA-Public Use
  Company Number: None

PATIENT
  Age: 36 Year
  Sex: Female
  Weight: 61.24 kg

DRUGS (2)
  1. ONDANSETRON ODT, USP 4 MG MYLAN PHARMACEUTICALS INC. [Suspect]
     Active Substance: ONDANSETRON
     Indication: NAUSEA
     Route: 060
     Dates: start: 20140626, end: 20140630
  2. ONDANSETRON ODT, USP 4 MG MYLAN PHARMACEUTICALS INC. [Suspect]
     Active Substance: ONDANSETRON
     Indication: COLITIS
     Route: 060
     Dates: start: 20140626, end: 20140630

REACTIONS (1)
  - Migraine [None]

NARRATIVE: CASE EVENT DATE: 20140630
